FAERS Safety Report 9732510 (Version 1)
Quarter: 2013Q4

REPORT INFORMATION
  Report Type: Spontaneous
  Country: CN (occurrence: CN)
  Receive Date: 20131205
  Receipt Date: 20131205
  Transmission Date: 20140711
  Serious: Yes (Other)
  Sender: FDA-Public Use
  Company Number: CN-JNJFOC-20131201157

PATIENT
  Sex: Female

DRUGS (1)
  1. SPORANOX [Suspect]
     Indication: ONYCHOMYCOSIS
     Route: 048
     Dates: start: 20131101, end: 20131113

REACTIONS (4)
  - Chest discomfort [Unknown]
  - Dyspnoea [Unknown]
  - Cardiac discomfort [Unknown]
  - Abdominal distension [Unknown]
